FAERS Safety Report 14191798 (Version 1)
Quarter: 2017Q4

REPORT INFORMATION
  Report Type: Spontaneous
  Country: CH (occurrence: CH)
  Receive Date: 20171115
  Receipt Date: 20171115
  Transmission Date: 20180321
  Serious: Yes (Hospitalization)
  Sender: FDA-Public Use
  Company Number: CH-ASTRAZENECA-2017SF13948

PATIENT
  Age: 20013 Day
  Sex: Female

DRUGS (7)
  1. RIVOTRIL [Concomitant]
     Active Substance: CLONAZEPAM
     Route: 048
  2. CLOPIN ECO [Suspect]
     Active Substance: CLOZAPINE
     Route: 048
     Dates: end: 20171012
  3. DEPAKINE CHRONO [Suspect]
     Active Substance: VALPROATE SODIUM
     Route: 048
     Dates: end: 20171012
  4. TRUXAL [Concomitant]
     Active Substance: CHLORPROTHIXENE
     Route: 048
  5. RISPERDAL [Suspect]
     Active Substance: RISPERIDONE
     Route: 048
     Dates: end: 20171012
  6. TRITTICO RETARD [Concomitant]
     Active Substance: TRAZODONE HYDROCHLORIDE
     Route: 048
  7. SEROQUEL XR [Suspect]
     Active Substance: QUETIAPINE FUMARATE
     Route: 048
     Dates: end: 20171012

REACTIONS (5)
  - Pancreatitis acute [Recovering/Resolving]
  - C-reactive protein increased [Recovering/Resolving]
  - Malaise [Recovering/Resolving]
  - Abdominal pain [Recovering/Resolving]
  - Leukocytosis [Recovering/Resolving]

NARRATIVE: CASE EVENT DATE: 20171012
